FAERS Safety Report 8363960-2 (Version None)
Quarter: 2012Q2

REPORT INFORMATION
  Report Type: 
  Country: None (occurrence: None)
  Receive Date: 20120516
  Receipt Date: 20120510
  Transmission Date: 20120825
  Serious: Yes (Other)
  Sender: FDA-Public Use
  Company Number: US-PFIZER INC-2012115610

PATIENT
  Age: 57 Year
  Sex: Male

DRUGS (1)
  1. POTASSIUM PENICILLIN G [Suspect]
     Indication: NEUROSYPHILIS
     Dosage: 3 MILLION UNITS Q4HOUR
     Route: 042

REACTIONS (2)
  - JARISCH-HERXHEIMER REACTION [None]
  - CEREBROVASCULAR ACCIDENT [None]
